FAERS Safety Report 9519046 (Version 1)
Quarter: 2013Q1

REPORT INFORMATION
  Report Type: Spontaneous
  Country: US (occurrence: None)
  Receive Date: 20130305
  Receipt Date: 20130305
  Transmission Date: 20140127
  Serious: Yes (Other)
  Sender: FDA-Public Use
  Company Number: 163-21880-12010949

PATIENT
  Age: 60 Year
  Sex: Male

DRUGS (10)
  1. REVLIMID [Suspect]
     Indication: PLASMA CELL MYELOMA
     Dosage: 5 MG, 1 IN 2 D, PO
     Route: 048
     Dates: start: 201009, end: 201201
  2. ZOVIRAX (ACICLOVIR) (UNKNOWN) [Concomitant]
  3. NEURONTIN (GABAPENTIN) (UNKNOWN) [Concomitant]
  4. PRILOSEC (OMEPRAZOLE) (UNKNOWN) [Concomitant]
  5. LOPRESSOR (METOPROLOL TARTRATE) (UNKNOWN) [Concomitant]
  6. HYTRIN (TERAZOSIN HYDROCHLORIDE) (UNKNOWN) [Concomitant]
  7. LEVITRA (VARDENAFIL HYDROCHLORIDE) (UNKNOWN) [Concomitant]
  8. TESSALON (BENZONATATE) (UNKNOWN) [Concomitant]
  9. ATIVAN (LORAZEPAM) (UNKNOWN) [Concomitant]
  10. VITAMIN D (ERGOCALCIFEROL) (UNKNOWN) [Concomitant]

REACTIONS (1)
  - Muscle spasms [None]
